FAERS Safety Report 5376366-5 (Version None)
Quarter: 2007Q3

REPORT INFORMATION
  Report Type: 
  Country: None (occurrence: None)
  Receive Date: 20070702
  Receipt Date: 20070622
  Transmission Date: 20080115
  Serious: Yes (Disabling)
  Sender: FDA-Public Use
  Company Number: JP-GILEAD-2006-0010188

PATIENT
  Sex: Male

DRUGS (10)
  1. VIREAD [Suspect]
     Indication: HIV INFECTION
     Route: 048
     Dates: start: 20031017
  2. VIDEX EC [Suspect]
     Indication: HIV INFECTION
     Route: 048
     Dates: start: 20010516, end: 20031016
  3. ZERIT [Suspect]
     Indication: HIV INFECTION
     Route: 048
     Dates: start: 19991101, end: 20031016
  4. ZERIT [Suspect]
     Route: 048
     Dates: start: 19971018, end: 19991031
  5. ZIAGEN [Suspect]
     Indication: HIV INFECTION
     Route: 048
     Dates: start: 20000403
  6. NORVIR [Suspect]
     Indication: HIV INFECTION
     Route: 048
     Dates: start: 20040116
  7. STOCRIN [Suspect]
     Indication: HIV INFECTION
     Route: 048
     Dates: start: 20000403, end: 20031016
  8. REYATAZ [Suspect]
     Indication: HIV INFECTION
     Route: 048
     Dates: start: 20040116
  9. KALETRA [Concomitant]
     Indication: HIV INFECTION
     Dates: start: 20031017, end: 20040115
  10. NOVACT M [Concomitant]
     Indication: FACTOR IX DEFICIENCY
     Dates: start: 20030401

REACTIONS (4)
  - HEPATIC CIRRHOSIS [None]
  - HYPERBILIRUBINAEMIA [None]
  - LIPOATROPHY [None]
  - LIPODYSTROPHY ACQUIRED [None]
